FAERS Safety Report 22400462 (Version 3)
Quarter: 2023Q4

REPORT INFORMATION
  Report Type: Spontaneous
  Country: PL (occurrence: PL)
  Receive Date: 20230602
  Receipt Date: 20231101
  Transmission Date: 20240110
  Serious: Yes (Hospitalization)
  Sender: FDA-Public Use
  Company Number: PL-LESVI-2023002022

PATIENT
  Age: 27 Year
  Sex: Male

DRUGS (25)
  1. QUETIAPINE [Suspect]
     Active Substance: QUETIAPINE
     Indication: Depression
     Dosage: 100 MILLIGRAM, QD (DAILY)
     Route: 048
     Dates: start: 2021
  2. QUETIAPINE [Suspect]
     Active Substance: QUETIAPINE
     Indication: Bipolar disorder
  3. DULOXETINE [Concomitant]
     Active Substance: DULOXETINE
     Indication: Depression
     Dosage: 120 MILLIGRAM
     Route: 065
     Dates: start: 2021
  4. DULOXETINE [Concomitant]
     Active Substance: DULOXETINE
     Indication: Bipolar disorder
  5. ARIPIPRAZOLE [Concomitant]
     Active Substance: ARIPIPRAZOLE
     Indication: Bipolar disorder
     Dosage: 22.5 MILLIGRAM, QD (DAILY)
     Route: 065
     Dates: start: 2021
  6. ARIPIPRAZOLE [Concomitant]
     Active Substance: ARIPIPRAZOLE
     Indication: Depression
     Dosage: 22.5 MILLIGRAM, QD
     Route: 065
     Dates: start: 202204
  7. OLANZAPINE [Concomitant]
     Active Substance: OLANZAPINE
     Indication: Depression
     Dosage: 20 MILLIGRAM, QD (DAILY)
     Route: 065
     Dates: start: 2021
  8. OLANZAPINE [Concomitant]
     Active Substance: OLANZAPINE
     Indication: Bipolar disorder
  9. SERTRALINE [Concomitant]
     Active Substance: SERTRALINE HYDROCHLORIDE
     Indication: Depression
     Dosage: 200 MILLIGRAM, QD (DAILY)
     Route: 065
     Dates: start: 2021
  10. SERTRALINE [Concomitant]
     Active Substance: SERTRALINE HYDROCHLORIDE
     Indication: Bipolar disorder
  11. VENLAFAXINE [Concomitant]
     Active Substance: VENLAFAXINE HYDROCHLORIDE
     Indication: Depression
     Dosage: 300 MILLIGRAM
     Route: 065
     Dates: start: 2021
  12. VENLAFAXINE [Concomitant]
     Active Substance: VENLAFAXINE HYDROCHLORIDE
     Indication: Bipolar disorder
     Dosage: 225 MILLIGRAM, QD
     Route: 065
     Dates: start: 202204
  13. LITHIUM [Concomitant]
     Active Substance: LITHIUM
     Indication: Depression
     Dosage: 1000 MILLIGRAM, QD (DAILY)
     Route: 065
     Dates: start: 2021
  14. LITHIUM [Concomitant]
     Active Substance: LITHIUM
     Indication: Bipolar disorder
     Dosage: 1000 MILLIGRAM, QD
     Route: 065
     Dates: start: 202204
  15. CHLORPROTHIXENE [Concomitant]
     Active Substance: CHLORPROTHIXENE
     Indication: Depression
     Dosage: 100 MILLIGRAM, QD (DAILY)
     Route: 065
     Dates: start: 2021
  16. CHLORPROTHIXENE [Concomitant]
     Active Substance: CHLORPROTHIXENE
     Indication: Bipolar disorder
     Dosage: 50 MILLIGRAM/GRAM (DAILY)
     Route: 065
     Dates: start: 202204
  17. CHLORPROTHIXENE [Concomitant]
     Active Substance: CHLORPROTHIXENE
     Dosage: UNK MILLIGRAM PER GRAM
     Route: 065
  18. ESCITALOPRAM [Concomitant]
     Active Substance: ESCITALOPRAM OXALATE
     Indication: Depression
     Dosage: 20 MILLIGRAM, QD (DAILY)
     Route: 065
     Dates: start: 2021
  19. ESCITALOPRAM [Concomitant]
     Active Substance: ESCITALOPRAM OXALATE
     Indication: Bipolar disorder
     Dosage: 10 MILLIGRAM
     Route: 065
     Dates: start: 202204
  20. ESCITALOPRAM [Concomitant]
     Active Substance: ESCITALOPRAM OXALATE
     Dosage: 10 MILLIGRAM
     Route: 065
  21. VALPROIC ACID [Concomitant]
     Active Substance: VALPROIC ACID
     Indication: Depression
     Dosage: 1500 MILLIGRAM, QD (DAILY)
     Route: 065
     Dates: start: 2021
  22. VALPROIC ACID [Concomitant]
     Active Substance: VALPROIC ACID
     Indication: Bipolar disorder
     Dosage: 1500 MILLIGRAM, QD
     Route: 065
     Dates: start: 202204
  23. METHYLPHENIDATE [Concomitant]
     Active Substance: METHYLPHENIDATE
     Indication: Bipolar disorder
     Dosage: 1500 MILLIGRAM, QD
     Route: 065
  24. VALPROIC ACID [Concomitant]
     Active Substance: VALPROIC ACID
     Indication: Bipolar disorder
     Dosage: 1500 MILLIGRAM, QD
     Route: 065
  25. VALPROIC ACID [Concomitant]
     Active Substance: VALPROIC ACID
     Indication: Depression

REACTIONS (3)
  - Suicidal ideation [Unknown]
  - Drug ineffective [Unknown]
  - Drug resistance [Unknown]
